FAERS Safety Report 13897665 (Version 3)
Quarter: 2018Q1

REPORT INFORMATION
  Report Type: Spontaneous
  Country: GB (occurrence: GB)
  Receive Date: 20170823
  Receipt Date: 20180108
  Transmission Date: 20180508
  Serious: Yes (Death, Hospitalization, Other)
  Sender: FDA-Public Use
  Company Number: GB-JNJFOC-20170819843

PATIENT
  Sex: Male

DRUGS (5)
  1. MIRTAZAPINE. [Concomitant]
     Active Substance: MIRTAZAPINE
     Indication: DEPRESSION
     Route: 048
  2. PREGABALIN. [Suspect]
     Active Substance: PREGABALIN
     Indication: PRODUCT USED FOR UNKNOWN INDICATION
     Route: 048
  3. ZAMADOL [Suspect]
     Active Substance: TRAMADOL HYDROCHLORIDE
     Indication: PAIN
     Route: 048
  4. TRAMADOL HYDROCHLORIDE. [Suspect]
     Active Substance: TRAMADOL HYDROCHLORIDE
     Indication: PAIN
     Route: 048
     Dates: end: 2015
  5. LANSOPRAZOLE. [Concomitant]
     Active Substance: LANSOPRAZOLE
     Route: 048

REACTIONS (16)
  - Nervousness [Fatal]
  - Drug abuse [Fatal]
  - Slow speech [Fatal]
  - Fatigue [Fatal]
  - Myocardial infarction [Fatal]
  - Toxicity to various agents [Fatal]
  - Prescription drug used without a prescription [Fatal]
  - Loss of consciousness [Not Recovered/Not Resolved]
  - Heart rate irregular [Fatal]
  - Intentional overdose [Fatal]
  - Circulatory collapse [Fatal]
  - Seizure [Fatal]
  - Diarrhoea [Unknown]
  - Pallor [Fatal]
  - Malaise [Fatal]
  - Somnolence [Fatal]

NARRATIVE: CASE EVENT DATE: 2015
